FAERS Safety Report 10236555 (Version 5)
Quarter: 2015Q2

REPORT INFORMATION
  Report Type: Spontaneous
  Country: US (occurrence: US)
  Receive Date: 20140613
  Receipt Date: 20150609
  Transmission Date: 20150821
  Serious: Yes (Death, Hospitalization, Other)
  Sender: FDA-Public Use
  Company Number: US-009507513-1406USA007106

PATIENT
  Sex: Male
  Weight: 72.56 kg

DRUGS (2)
  1. JANUMET [Suspect]
     Active Substance: METFORMIN HYDROCHLORIDE\SITAGLIPTIN PHOSPHATE
     Indication: TYPE 2 DIABETES MELLITUS
     Dosage: 50 MG, QD
     Route: 048
     Dates: start: 20080106, end: 20080618
  2. JANUMET [Suspect]
     Active Substance: METFORMIN HYDROCHLORIDE\SITAGLIPTIN PHOSPHATE
     Dosage: 50-1000 MG, BID
     Route: 048
     Dates: start: 20080106, end: 20080618

REACTIONS (22)
  - Tachycardia [Unknown]
  - Constipation [Unknown]
  - Excoriation [Unknown]
  - Surgery [Unknown]
  - Inappropriate schedule of drug administration [Unknown]
  - Hiccups [Unknown]
  - Explorative laparotomy [Unknown]
  - Gastrostomy [Unknown]
  - Nephropathy [Unknown]
  - Angioplasty [Unknown]
  - Intestinal obstruction [Unknown]
  - Peripheral vascular disorder [Unknown]
  - Hypercholesterolaemia [Unknown]
  - Hypertension [Unknown]
  - Pancreatic carcinoma metastatic [Fatal]
  - Metastatic neoplasm [Unknown]
  - Wheezing [Unknown]
  - Drain placement [Unknown]
  - Oral disorder [Unknown]
  - Endarterectomy [Unknown]
  - Depression [Unknown]
  - Orthopaedic procedure [Unknown]

NARRATIVE: CASE EVENT DATE: 20080106
